FAERS Safety Report 10210123 (Version 1)
Quarter: 2014Q2

REPORT INFORMATION
  Report Type: Report from Study
  Country: FR (occurrence: FR)
  Receive Date: 20140602
  Receipt Date: 20140602
  Transmission Date: 20141212
  Serious: Yes (Other)
  Sender: FDA-Public Use
  Company Number: PHHY2014FR066805

PATIENT
  Age: 44 Year
  Sex: Female

DRUGS (1)
  1. MYCOPHENOLIC ACID [Suspect]
     Dosage: 360 MG, DAILY
     Dates: start: 20131004

REACTIONS (2)
  - Brain natriuretic peptide increased [Unknown]
  - Pulmonary oedema [Recovered/Resolved]
